FAERS Safety Report 21608928 (Version 1)
Quarter: 2022Q4

REPORT INFORMATION
  Report Type: Spontaneous
  Country: US (occurrence: None)
  Receive Date: 20221116
  Receipt Date: 20221116
  Transmission Date: 20230112
  Serious: No
  Sender: FDA-Public Use
  Company Number: None

PATIENT
  Age: 27 Year
  Sex: Male
  Weight: 98.1 kg

DRUGS (3)
  1. METHYLPHENIDATE [Suspect]
     Active Substance: METHYLPHENIDATE
     Indication: Attention deficit hyperactivity disorder
     Dosage: OTHER QUANTITY : 2 TABLET(S);?
     Route: 048
     Dates: start: 20221024, end: 20221115
  2. Only the generic Concerta er [Concomitant]
  3. Wild salmon oil [Concomitant]

REACTIONS (5)
  - Drug ineffective [None]
  - Product substitution issue [None]
  - Mood swings [None]
  - Irritability [None]
  - Memory impairment [None]

NARRATIVE: CASE EVENT DATE: 20221026
